FAERS Safety Report 14832531 (Version 3)
Quarter: 2018Q2

REPORT INFORMATION
  Report Type: Report from Study
  Country: US (occurrence: US)
  Receive Date: 20180501
  Receipt Date: 20180627
  Transmission Date: 20180711
  Serious: Yes (Other)
  Sender: FDA-Public Use
  Company Number: US-PFIZER INC-2018055679

PATIENT
  Age: 71 Year
  Sex: Female

DRUGS (3)
  1. IBRANCE [Suspect]
     Active Substance: PALBOCICLIB
     Indication: BREAST CANCER FEMALE
     Dosage: 125 MG, CYCLIC [DAILY; 3 WEEKS ON/1 WEEK OFF ALSO REPORTED AS DAILY FOR 21 DAYS AND OFF 7 DAYS]
     Route: 048
     Dates: start: 20180118, end: 20180405
  2. IBRANCE [Suspect]
     Active Substance: PALBOCICLIB
     Dosage: 125 MG, CYCLIC [DAILY; 3 WEEKS ON/1 WEEK OFF ALSO REPORTED AS DAILY FOR 21 DAYS AND OFF 7 DAYS]
     Route: 048
     Dates: start: 20180423
  3. LETROZOLE. [Concomitant]
     Active Substance: LETROZOLE
     Dosage: UNK, DAILY

REACTIONS (16)
  - Tooth disorder [Unknown]
  - Increased tendency to bruise [Unknown]
  - Rash [Unknown]
  - Blood pressure increased [Unknown]
  - Bone marrow failure [Unknown]
  - Fatigue [Unknown]
  - Arthralgia [Unknown]
  - Impaired healing [Unknown]
  - Dizziness [Unknown]
  - Pain [Unknown]
  - Sensitivity of teeth [Unknown]
  - Dry skin [Unknown]
  - Oropharyngeal pain [Unknown]
  - Dry mouth [Unknown]
  - Neck pain [Unknown]
  - Balance disorder [Unknown]

NARRATIVE: CASE EVENT DATE: 2018
